FAERS Safety Report 15543785 (Version 4)
Quarter: 2018Q4

REPORT INFORMATION
  Report Type: Spontaneous
  Country: US (occurrence: US)
  Receive Date: 20181023
  Receipt Date: 20181116
  Transmission Date: 20190205
  Serious: No
  Sender: FDA-Public Use
  Company Number: US-TEVA-2018-US-966684

PATIENT
  Sex: Male

DRUGS (1)
  1. CLONAZTAB [Suspect]
     Active Substance: CLONAZEPAM
     Indication: ANXIETY
     Route: 065
     Dates: end: 201807

REACTIONS (3)
  - Wrong technique in product usage process [Unknown]
  - Drug effect incomplete [Unknown]
  - Product substitution issue [Unknown]
